FAERS Safety Report 18878509 (Version 1)
Quarter: 2021Q1

REPORT INFORMATION
  Report Type: Spontaneous
  Country: US (occurrence: US)
  Receive Date: 20210211
  Receipt Date: 20210211
  Transmission Date: 20210420
  Serious: Yes (Death)
  Sender: FDA-Public Use
  Company Number: None

PATIENT
  Age: 84 Year
  Sex: Male
  Weight: 70 kg

DRUGS (1)
  1. BARICITINIB (BARICITINIB 2MG TAB) [Suspect]
     Active Substance: BARICITINIB
     Indication: COVID-19 PNEUMONIA
     Route: 048
     Dates: start: 20210120, end: 20210126

REACTIONS (12)
  - Acute kidney injury [None]
  - Bacteraemia [None]
  - Septic shock [None]
  - Multiple organ dysfunction syndrome [None]
  - Transfusion [None]
  - Staphylococcal infection [None]
  - Acidosis [None]
  - Blood culture positive [None]
  - Hypercapnia [None]
  - Acute respiratory failure [None]
  - Pulmonary embolism [None]
  - Acute respiratory distress syndrome [None]

NARRATIVE: CASE EVENT DATE: 20210127
